FAERS Safety Report 14189193 (Version 2)
Quarter: 2017Q4

REPORT INFORMATION
  Report Type: Spontaneous
  Country: GB (occurrence: GB)
  Receive Date: 20171115
  Receipt Date: 20171130
  Transmission Date: 20180321
  Serious: Yes (Death, Hospitalization)
  Sender: FDA-Public Use
  Company Number: GB-ACCORD-060908

PATIENT
  Age: 70 Year
  Sex: Female
  Weight: 62 kg

DRUGS (5)
  1. DALTEPARIN [Suspect]
     Active Substance: DALTEPARIN
     Indication: PULMONARY EMBOLISM
  2. DOMPERIDONE [Concomitant]
     Active Substance: DOMPERIDONE
  3. RITUXIMAB. [Concomitant]
     Active Substance: RITUXIMAB
     Indication: WALDENSTROM^S MACROGLOBULINAEMIA
  4. ACICLOVIR [Concomitant]
     Active Substance: ACYCLOVIR
  5. BENDAMUSTINE/BENDAMUSTINE HYDROCHLORID E [Suspect]
     Active Substance: BENDAMUSTINE HYDROCHLORIDE
     Indication: WALDENSTROM^S MACROGLOBULINAEMIA
     Route: 042
     Dates: start: 20170427, end: 20170828

REACTIONS (6)
  - Off label use [Unknown]
  - Neutropenic colitis [None]
  - Cytomegalovirus colitis [Fatal]
  - Malnutrition [None]
  - General physical health deterioration [None]
  - Gastrointestinal haemorrhage [Recovered/Resolved]

NARRATIVE: CASE EVENT DATE: 20170828
